FAERS Safety Report 16388246 (Version 1)
Quarter: 2019Q2

REPORT INFORMATION
  Report Type: Spontaneous
  Country: HR (occurrence: HR)
  Receive Date: 20190604
  Receipt Date: 20190604
  Transmission Date: 20190711
  Serious: Yes (Hospitalization)
  Sender: FDA-Public Use
  Company Number: HR-ROCHE-2197167

PATIENT
  Age: 59 Year
  Sex: Female

DRUGS (22)
  1. VECTIBIX [Suspect]
     Active Substance: PANITUMUMAB
     Indication: RECTOSIGMOID CANCER METASTATIC
     Route: 065
     Dates: start: 201706, end: 2017
  2. IRINOTECAN [Suspect]
     Active Substance: IRINOTECAN
     Indication: RECTOSIGMOID CANCER METASTATIC
     Route: 065
     Dates: start: 2017, end: 2018
  3. CAPECITABINE. [Suspect]
     Active Substance: CAPECITABINE
     Indication: RECTOSIGMOID CANCER METASTATIC
     Route: 065
     Dates: start: 201806, end: 201806
  4. FOLINIC ACID [Suspect]
     Active Substance: LEUCOVORIN
     Indication: RECTOSIGMOID CANCER METASTATIC
     Route: 065
     Dates: start: 2017, end: 2017
  5. FOLINIC ACID [Suspect]
     Active Substance: LEUCOVORIN
     Route: 065
     Dates: start: 201808, end: 201811
  6. FLUOROURACIL. [Suspect]
     Active Substance: FLUOROURACIL
     Route: 065
     Dates: start: 201706, end: 2017
  7. VECTIBIX [Suspect]
     Active Substance: PANITUMUMAB
     Route: 065
     Dates: start: 201808, end: 201811
  8. FOLINIC ACID [Suspect]
     Active Substance: LEUCOVORIN
     Route: 065
     Dates: start: 201706, end: 2017
  9. FLUOROURACIL. [Suspect]
     Active Substance: FLUOROURACIL
     Route: 065
     Dates: start: 201902, end: 201903
  10. FOLINIC ACID [Suspect]
     Active Substance: LEUCOVORIN
     Route: 065
     Dates: start: 201902, end: 201903
  11. FLUOROURACIL. [Suspect]
     Active Substance: FLUOROURACIL
     Indication: RECTOSIGMOID CANCER METASTATIC
     Route: 065
     Dates: start: 201808, end: 201811
  12. IRINOTECAN [Suspect]
     Active Substance: IRINOTECAN
     Dosage: UNK
     Route: 065
     Dates: start: 2017, end: 2017
  13. IRINOTECAN [Suspect]
     Active Substance: IRINOTECAN
     Dosage: UNK (DOSE REDUCTION)
     Route: 065
     Dates: start: 201706, end: 2018
  14. FILGRASTIM [Suspect]
     Active Substance: FILGRASTIM
     Indication: PROPHYLAXIS
     Route: 065
     Dates: start: 2017
  15. VECTIBIX [Suspect]
     Active Substance: PANITUMUMAB
     Route: 065
     Dates: start: 201902, end: 201903
  16. FOLINIC ACID [Suspect]
     Active Substance: LEUCOVORIN
     Route: 065
     Dates: start: 2017, end: 2018
  17. FLUOROURACIL. [Suspect]
     Active Substance: FLUOROURACIL
     Route: 065
     Dates: start: 2017, end: 2017
  18. FOLINIC ACID [Suspect]
     Active Substance: LEUCOVORIN
     Route: 065
     Dates: start: 201706, end: 2018
  19. VECTIBIX [Suspect]
     Active Substance: PANITUMUMAB
     Route: 065
     Dates: start: 2017, end: 2018
  20. VECTIBIX [Suspect]
     Active Substance: PANITUMUMAB
     Route: 065
     Dates: start: 2017, end: 2017
  21. IRINOTECAN [Suspect]
     Active Substance: IRINOTECAN
     Route: 065
     Dates: start: 201902, end: 201903
  22. IRINOTECAN [Suspect]
     Active Substance: IRINOTECAN
     Dosage: UNK (DOSE REDUCTION)
     Route: 065
     Dates: start: 201808, end: 201811

REACTIONS (6)
  - Skin toxicity [Unknown]
  - Neutropenia [Unknown]
  - Mucosal inflammation [Unknown]
  - Malignant neoplasm progression [Unknown]
  - Weight increased [Unknown]
  - Palmar-plantar erythrodysaesthesia syndrome [Unknown]

NARRATIVE: CASE EVENT DATE: 2017
